FAERS Safety Report 6096054-X (Version None)
Quarter: 2009Q1

REPORT INFORMATION
  Report Type: 
  Country: None (occurrence: None)
  Receive Date: 20090227
  Receipt Date: 20080821
  Transmission Date: 20090719
  Serious: No
  Sender: FDA-Public Use
  Company Number: A0743721A

PATIENT
  Age: 52 Year
  Sex: Male

DRUGS (1)
  1. LAMICTAL [Suspect]
     Dosage: 150MG TWICE PER DAY
     Route: 048
     Dates: start: 20050101, end: 20080731

REACTIONS (3)
  - BLOOD URINE PRESENT [None]
  - HAEMATOCHEZIA [None]
  - HEADACHE [None]
